FAERS Safety Report 9851756 (Version 1)
Quarter: 2014Q1

REPORT INFORMATION
  Report Type: Spontaneous
  Country: US (occurrence: US)
  Receive Date: 20140129
  Receipt Date: 20140129
  Transmission Date: 20141002
  Serious: No
  Sender: FDA-Public Use
  Company Number: US-009507513-1401USA013156

PATIENT
  Sex: Female
  Weight: 65.76 kg

DRUGS (2)
  1. NUVARING [Suspect]
     Indication: CONTRACEPTION
     Dosage: DOSE/FREQ: 3 WEEKS IN, 1 WEEK OUT, 1 RING, QM
     Route: 067
     Dates: start: 2012
  2. NUVARING [Suspect]
     Indication: MENSTRUAL CYCLE MANAGEMENT

REACTIONS (3)
  - Menorrhagia [Recovered/Resolved]
  - Poor quality drug administered [Unknown]
  - Anaemia [Unknown]
